FAERS Safety Report 5980304-1 (Version None)
Quarter: 2008Q4

REPORT INFORMATION
  Report Type: 
  Country: None (occurrence: None)
  Receive Date: 20081205
  Receipt Date: 20081128
  Transmission Date: 20090506
  Serious: Yes (Other)
  Sender: FDA-Public Use
  Company Number: PHHY2008JP30216

PATIENT
  Age: 80 Year

DRUGS (2)
  1. VOLTAREN [Suspect]
     Dosage: 50 MG/DAY
     Route: 054
  2. LASIX [Suspect]
     Route: 048

REACTIONS (1)
  - BLOOD POTASSIUM DECREASED [None]
